FAERS Safety Report 6179158-2 (Version None)
Quarter: 2009Q2

REPORT INFORMATION
  Report Type: 
  Country: None (occurrence: None)
  Receive Date: 20090505
  Receipt Date: 20090429
  Transmission Date: 20091009
  Serious: Yes (Disabling)
  Sender: FDA-Public Use
  Company Number: SE-ASTRAZENECA-2009SE00348

PATIENT
  Age: 1000 Month
  Sex: Female
  Weight: 84 kg

DRUGS (18)
  1. PLENDIL [Suspect]
     Indication: HYPERTENSION
     Route: 048
     Dates: start: 20030527, end: 20080918
  2. CIPRAMIL [Concomitant]
  3. ACETAMINOPHEN [Concomitant]
     Indication: PAIN
     Dosage: MAX 4 TABLETS PER DAY
     Route: 048
  4. FURIX [Concomitant]
     Dosage: 2+1+0+0
  5. ZYLORIC [Concomitant]
  6. ATENOLOL [Concomitant]
  7. NITROMEX [Concomitant]
     Dosage: WHEN NEEDED
  8. FOLACIN [Concomitant]
  9. IPREN [Concomitant]
     Indication: KNEE OPERATION
  10. OXYNORM [Concomitant]
     Indication: KNEE OPERATION
     Dosage: WHEN NEEDED
  11. OXYCONTIN [Concomitant]
     Indication: KNEE OPERATION
     Dosage: 1+0+1+0
  12. FRAGMIN [Concomitant]
     Indication: KNEE OPERATION
  13. DEXOFEN [Concomitant]
     Indication: KNEE OPERATION
  14. FLUNITRAZEPAM [Concomitant]
     Dosage: NIGHTLY
  15. COZAAR [Concomitant]
  16. MULTI-VITAMINS [Concomitant]
  17. DIAZEPAM [Concomitant]
     Indication: ANXIETY
     Route: 048
  18. IMDUR [Concomitant]
     Route: 048

REACTIONS (4)
  - GINGIVAL HYPERPLASIA [None]
  - GINGIVAL SWELLING [None]
  - ORAL PAIN [None]
  - TOOTH LOSS [None]
